FAERS Safety Report 15429357 (Version 1)
Quarter: 2018Q3

REPORT INFORMATION
  Report Type: Spontaneous
  Country: IN (occurrence: IN)
  Receive Date: 20180926
  Receipt Date: 20180926
  Transmission Date: 20181010
  Serious: Yes (Death, Hospitalization)
  Sender: FDA-Public Use
  Company Number: IN-MYLANLABS-2018M1068507

PATIENT
  Age: 76 Year
  Sex: Female

DRUGS (3)
  1. TIGECYCLINE. [Suspect]
     Active Substance: TIGECYCLINE
     Indication: POSTOPERATIVE CARE
     Route: 065
  2. COLISTIN [Suspect]
     Active Substance: COLISTIN
     Indication: POSTOPERATIVE CARE
     Route: 065
  3. LINEZOLID. [Suspect]
     Active Substance: LINEZOLID
     Indication: POSTOPERATIVE CARE
     Dosage: 600 MG, UNK
     Route: 042

REACTIONS (2)
  - Bacteraemia [Fatal]
  - Sepsis [Fatal]
